FAERS Safety Report 17185393 (Version 2)
Quarter: 2020Q1

REPORT INFORMATION
  Report Type: Spontaneous
  Country: US (occurrence: US)
  Receive Date: 20191220
  Receipt Date: 20200318
  Transmission Date: 20200409
  Serious: No
  Sender: FDA-Public Use
  Company Number: US-THERAPEUTICSMD-2019TMD04841

PATIENT
  Age: 64 Year
  Sex: Female
  Weight: 72.56 kg

DRUGS (17)
  1. VALSARTAN. [Concomitant]
     Active Substance: VALSARTAN
  2. BUFFERED VITAMIN C POWDER [Concomitant]
  3. MONTELUKAST [Concomitant]
     Active Substance: MONTELUKAST SODIUM
  4. PSYLLIUM HUSK. [Concomitant]
     Active Substance: PSYLLIUM HUSK
  5. SYNTHROID [Concomitant]
     Active Substance: LEVOTHYROXINE SODIUM
     Dosage: UNK
  6. HYDROCODONE BITARTRATE AND ACETAMINOPHEN [Concomitant]
     Active Substance: ACETAMINOPHEN\HYDROCODONE BITARTRATE
  7. MIRALAX [Concomitant]
     Active Substance: POLYETHYLENE GLYCOL 3350
  8. MINERAL OIL. [Concomitant]
     Active Substance: MINERAL OIL
  9. LAMOTRIGINE. [Concomitant]
     Active Substance: LAMOTRIGINE
     Dosage: UNK
  10. ULTRA NUTRIENT (ANTIOXIDANTS AND PHYTONUTRIENTS) [Concomitant]
  11. LEVOCETIRIZINE [Concomitant]
     Active Substance: LEVOCETIRIZINE
  12. IMVEXXY [Suspect]
     Active Substance: ESTRADIOL
     Indication: VULVOVAGINAL DRYNESS
     Dosage: 4 ?G, 2X/WEEK, AT BEDTIME
     Route: 067
     Dates: start: 20191018, end: 201912
  13. CLONAZEPAM. [Concomitant]
     Active Substance: CLONAZEPAM
  14. DULOXETINE. [Concomitant]
     Active Substance: DULOXETINE
  15. LIDODERM [Concomitant]
     Active Substance: LIDOCAINE
  16. RENADYL (PROBIOTIC) [Concomitant]
  17. B12 RAPID SHOT [Concomitant]
     Route: 060

REACTIONS (4)
  - Chronic fatigue syndrome [Not Recovered/Not Resolved]
  - Chronic kidney disease [Not Recovered/Not Resolved]
  - Fibromyalgia [Not Recovered/Not Resolved]
  - Off label use [Recovered/Resolved]

NARRATIVE: CASE EVENT DATE: 20191018
